FAERS Safety Report 6168171-7 (Version None)
Quarter: 2009Q2

REPORT INFORMATION
  Report Type: 
  Country: None (occurrence: None)
  Receive Date: 20090427
  Receipt Date: 20090416
  Transmission Date: 20091009
  Serious: Yes (Hospitalization, Other)
  Sender: FDA-Public Use
  Company Number: PHHY2009JP14529

PATIENT

DRUGS (3)
  1. OCTREOTIDE ACETATE [Suspect]
     Dosage: 0.5 UG/KG PER HOUR
  2. OCTREOTIDE ACETATE [Suspect]
     Dosage: 10 ?G/KG PER HOUR
  3. PICIBANIL [Suspect]
     Route: 034

REACTIONS (5)
  - C-REACTIVE PROTEIN INCREASED [None]
  - DRUG INEFFECTIVE [None]
  - PLEURAL DISORDER [None]
  - PYREXIA [None]
  - TACHYPNOEA [None]
